FAERS Safety Report 9281709 (Version 3)
Quarter: 2013Q4

REPORT INFORMATION
  Report Type: Report from Study
  Country: DE (occurrence: DE)
  Receive Date: 20130509
  Receipt Date: 20131112
  Transmission Date: 20140711
  Serious: Yes (Hospitalization)
  Sender: FDA-Public Use
  Company Number: DE-ROCHE-1222910

PATIENT
  Age: 53 Year
  Sex: Female
  Weight: 55.7 kg

DRUGS (3)
  1. BEVACIZUMAB [Suspect]
     Indication: OVARIAN CANCER
     Dosage: LAST DOSE PRIOR TO THE EVENT 18/APR/2013
     Route: 042
     Dates: start: 20120801, end: 20130502
  2. CARBOPLATIN [Suspect]
     Indication: OVARIAN CANCER
     Dosage: DATE OF LST DOSE PRIOR TO THE EVENT 28/NOV/2012 DOSE :5 AUC
     Route: 042
     Dates: start: 20120801, end: 20130502
  3. PACLITAXEL [Suspect]
     Indication: OVARIAN CANCER
     Dosage: DATE OF LST DOSE PRIOR TO THE EVENT 23/NOV/2012
     Route: 042
     Dates: start: 20120801, end: 20130502

REACTIONS (1)
  - General physical health deterioration [Recovered/Resolved]
